FAERS Safety Report 21784416 (Version 1)
Quarter: 2022Q4

REPORT INFORMATION
  Report Type: Spontaneous
  Country: US (occurrence: US)
  Receive Date: 20221227
  Receipt Date: 20221227
  Transmission Date: 20230113
  Serious: No
  Sender: FDA-Public Use
  Company Number: US-GILEAD-2022-0610942

PATIENT
  Sex: Female
  Weight: 79.365 kg

DRUGS (4)
  1. LETAIRIS [Suspect]
     Active Substance: AMBRISENTAN
     Indication: Product used for unknown indication
     Dosage: UNK
     Route: 065
  2. REMODULIN [Suspect]
     Active Substance: TREPROSTINIL
     Indication: Product used for unknown indication
     Dosage: UNK
     Route: 042
     Dates: start: 20221020
  3. ELIQUIS [Concomitant]
     Active Substance: APIXABAN
  4. TADALAFIL [Concomitant]
     Active Substance: TADALAFIL

REACTIONS (1)
  - Product dose omission issue [Unknown]
